FAERS Safety Report 24721369 (Version 1)
Quarter: 2024Q4

REPORT INFORMATION
  Report Type: Spontaneous
  Country: US (occurrence: None)
  Receive Date: 20241210
  Receipt Date: 20241210
  Transmission Date: 20250115
  Serious: Yes (Hospitalization)
  Sender: Public
  Company Number: None

PATIENT
  Sex: Female

DRUGS (2)
  1. HYRIMOZ [Suspect]
     Active Substance: ADALIMUMAB-ADAZ
     Indication: Crohn^s disease
     Dosage: OTHER FREQUENCY : EVERY14DAYS;?
     Route: 042
     Dates: start: 202409
  2. HYRIMOZ PEN CD/UCSTRT [Concomitant]

REACTIONS (2)
  - Migraine [None]
  - Therapy interrupted [None]
